FAERS Safety Report 18397620 (Version 1)
Quarter: 2020Q4

REPORT INFORMATION
  Report Type: Spontaneous
  Country: US (occurrence: US)
  Receive Date: 20201016
  Receipt Date: 20201016
  Transmission Date: 20210114
  Serious: Yes (Hospitalization)
  Sender: FDA-Public Use
  Company Number: None

PATIENT
  Sex: Female
  Weight: 122.5 kg

DRUGS (1)
  1. TAXOTERE [Suspect]
     Active Substance: DOCETAXEL
     Dates: end: 20191209

REACTIONS (13)
  - Anuria [None]
  - Leukocytosis [None]
  - Thrombocytopenia [None]
  - Hypokalaemia [None]
  - Pain [None]
  - Sepsis [None]
  - Oral herpes [None]
  - Neutrophilia [None]
  - Blood creatinine increased [None]
  - Oral mucosal exfoliation [None]
  - Anaemia [None]
  - Melaena [None]
  - Toxic skin eruption [None]

NARRATIVE: CASE EVENT DATE: 20200109
